FAERS Safety Report 24419340 (Version 2)
Quarter: 2024Q4

REPORT INFORMATION
  Report Type: Report from Study
  Country: US (occurrence: US)
  Receive Date: 20241009
  Receipt Date: 20241018
  Transmission Date: 20250115
  Serious: No
  Sender: ROCHE
  Company Number: US-ROCHE-3474666

PATIENT
  Age: 1 Year
  Sex: Female

DRUGS (4)
  1. CATHFLO ACTIVASE [Suspect]
     Active Substance: ALTEPLASE
     Indication: Acute lymphocytic leukaemia
     Dosage: CENTRAL VENOUS CATHETER OCCULSION WITH THROMBOLYTIC AGENT
     Route: 065
  2. CATHFLO ACTIVASE [Suspect]
     Active Substance: ALTEPLASE
     Indication: Pancytopenia
     Route: 065
     Dates: start: 20231114
  3. CATHFLO ACTIVASE [Suspect]
     Active Substance: ALTEPLASE
     Indication: Vascular device infection
  4. CATHFLO ACTIVASE [Suspect]
     Active Substance: ALTEPLASE
     Indication: Pneumonia

REACTIONS (2)
  - Off label use [Unknown]
  - No adverse event [Unknown]
